FAERS Safety Report 26096599 (Version 2)
Quarter: 2025Q4

REPORT INFORMATION
  Report Type: Spontaneous
  Country: CA (occurrence: CA)
  Receive Date: 20251127
  Receipt Date: 20251219
  Transmission Date: 20260118
  Serious: Yes (Other)
  Sender: THERAKOS
  Company Number: CA-THERAKOS-2025THK000113

PATIENT
  Age: 72 Year
  Sex: Female

DRUGS (3)
  1. UVADEX [Suspect]
     Active Substance: METHOXSALEN
     Indication: Graft versus host disease
     Dosage: UNK
  2. AZACITIDINE [Concomitant]
     Active Substance: AZACITIDINE
  3. VENETOCLAX [Concomitant]
     Active Substance: VENETOCLAX

REACTIONS (2)
  - Acute myeloid leukaemia recurrent [Not Recovered/Not Resolved]
  - Off label use [Unknown]

NARRATIVE: CASE EVENT DATE: 20250101
